FAERS Safety Report 19866401 (Version 1)
Quarter: 2021Q3

REPORT INFORMATION
  Report Type: Spontaneous
  Country: NL (occurrence: NL)
  Receive Date: 20210921
  Receipt Date: 20210921
  Transmission Date: 20211014
  Serious: Yes (Death, Life-Threatening, Other)
  Sender: FDA-Public Use
  Company Number: NL-PFIZER INC-2021694620

PATIENT
  Age: 38 Year
  Sex: Female

DRUGS (4)
  1. OCTREOTIDE. [Concomitant]
     Active Substance: OCTREOTIDE
     Indication: EAR NEOPLASM
     Dosage: LONG?ACTING RELEASE (EVERY 2 WEEKS)
  2. ETOPOSIDE. [Suspect]
     Active Substance: ETOPOSIDE
     Indication: METASTASES TO PERITONEUM
     Dosage: UNK, CYCLIC (3CYCLES)
  3. CARBOPLATIN. [Suspect]
     Active Substance: CARBOPLATIN
     Indication: METASTASES TO PERITONEUM
     Dosage: UNK, CYCLIC (3CYCLES)
  4. OCTREOTIDE. [Concomitant]
     Active Substance: OCTREOTIDE
     Indication: NEUROENDOCRINE CARCINOMA METASTATIC
     Dosage: LONG?ACTING RELEASE (EVERY 4 WEEKS)

REACTIONS (2)
  - Pancytopenia [Fatal]
  - Neoplasm progression [Fatal]
